FAERS Safety Report 9526782 (Version 2)
Quarter: 2013Q4

REPORT INFORMATION
  Report Type: Spontaneous
  Country: US (occurrence: US)
  Receive Date: 20130916
  Receipt Date: 20131108
  Transmission Date: 20140711
  Serious: Yes (Other)
  Sender: FDA-Public Use
  Company Number: US-GLAXOSMITHKLINE-A1041571A

PATIENT
  Age: 76 Year
  Sex: Female

DRUGS (1)
  1. FLONASE [Suspect]
     Indication: ASTHMA
     Dosage: 50MCG UNKNOWN
     Route: 065
     Dates: start: 20101231

REACTIONS (1)
  - Knee arthroplasty [Unknown]
